FAERS Safety Report 4916492-5 (Version None)
Quarter: 2006Q1

REPORT INFORMATION
  Report Type: 
  Country: None (occurrence: None)
  Receive Date: 20060220
  Receipt Date: 20060130
  Transmission Date: 20060701
  Serious: Yes (Hospitalization)
  Sender: FDA-Public Use
  Company Number: FR-RB-2694-2006

PATIENT
  Age: 39 Year
  Sex: Male
  Weight: 66 kg

DRUGS (7)
  1. BUPRENORPHINE HCL [Suspect]
     Indication: DRUG USE FOR UNKNOWN INDICATION
     Route: 060
     Dates: start: 20051205
  2. CYAMEMAZINE [Suspect]
     Route: 048
     Dates: start: 20050730
  3. CLOZAPINE [Suspect]
     Route: 048
     Dates: start: 20051206, end: 20051226
  4. CLOZAPINE [Suspect]
     Route: 048
     Dates: start: 20051227
  5. TROPATEPINE HYDROCHLORIDE [Suspect]
     Indication: DRUG USE FOR UNKNOWN INDICATION
     Route: 048
     Dates: start: 20050612
  6. DIAZEPAM [Suspect]
     Indication: DRUG USE FOR UNKNOWN INDICATION
     Route: 048
     Dates: start: 20050810
  7. MEPROBAMATE [Suspect]
     Indication: DRUG USE FOR UNKNOWN INDICATION
     Route: 048
     Dates: start: 20051124

REACTIONS (5)
  - BLOOD CREATINE PHOSPHOKINASE INCREASED [None]
  - C-REACTIVE PROTEIN INCREASED [None]
  - INFECTION [None]
  - LEUKOCYTOSIS [None]
  - MYALGIA [None]
